FAERS Safety Report 17577417 (Version 1)
Quarter: 2020Q1

REPORT INFORMATION
  Report Type: Other
  Country: JP (occurrence: JP)
  Receive Date: 20200324
  Receipt Date: 20200324
  Transmission Date: 20200409
  Serious: Yes (Other)
  Sender: FDA-Public Use
  Company Number: JP-ASPEN-GLO2020JP003090

PATIENT
  Age: 64 Year
  Sex: Male

DRUGS (4)
  1. DEXAMETHASONE. [Suspect]
     Active Substance: DEXAMETHASONE
     Indication: PLASMABLASTIC LYMPHOMA
     Dosage: 40 MG ORALLY ON DAYS 1, 8, 15, AND 22.
     Route: 048
     Dates: start: 2016, end: 201612
  2. CYCLOPHOSPHAMIDE. [Suspect]
     Active Substance: CYCLOPHOSPHAMIDE
     Indication: PLASMABLASTIC LYMPHOMA
     Dosage: 300 MG/M2 ORALLY ON DAYS 1, 8, 15, AND 22.
     Route: 048
     Dates: start: 2016, end: 201612
  3. DEXAMETHASONE. [Suspect]
     Active Substance: DEXAMETHASONE
     Dosage: ON DAYS 1, 8, 15, AND 22
     Route: 065
     Dates: start: 201612
  4. BORTEZOMIB. [Suspect]
     Active Substance: BORTEZOMIB
     Indication: PLASMABLASTIC LYMPHOMA
     Dosage: 1.3 MG/M2 SUBCUTANEOUSLY ON DAYS 1, 8, 15, AND 22.
     Route: 058
     Dates: start: 2016, end: 201612

REACTIONS (3)
  - Drug intolerance [Unknown]
  - Neuropathy peripheral [Unknown]
  - Neurotoxicity [Unknown]

NARRATIVE: CASE EVENT DATE: 2016
